FAERS Safety Report 14120806 (Version 24)
Quarter: 2019Q3

REPORT INFORMATION
  Report Type: Report from Study
  Country: US (occurrence: US)
  Receive Date: 20171024
  Receipt Date: 20190731
  Transmission Date: 20191004
  Serious: Yes (Life-Threatening, Hospitalization, Disabling, Other)
  Sender: FDA-Public Use
  Company Number: PHHO2017US012668

PATIENT
  Age: 17 Year
  Sex: Female
  Weight: 45 kg

DRUGS (29)
  1. CICLOSPORIN [Suspect]
     Active Substance: CYCLOSPORINE
     Indication: HAEMOPHAGOCYTIC LYMPHOHISTIOCYTOSIS
     Dosage: 25 MG, QD
     Route: 065
     Dates: start: 20171031, end: 20171114
  2. CICLOSPORIN [Suspect]
     Active Substance: CYCLOSPORINE
     Dosage: 125 MG, QD
     Route: 065
     Dates: start: 20171115, end: 20180908
  3. METHOTREXATE. [Suspect]
     Active Substance: METHOTREXATE
     Dosage: UNK
     Route: 065
     Dates: start: 20171108
  4. KINERET [Suspect]
     Active Substance: ANAKINRA
     Indication: HAEMOPHAGOCYTIC LYMPHOHISTIOCYTOSIS
     Dosage: 100 MG, QD
     Route: 065
     Dates: start: 20170814, end: 20170814
  5. KINERET [Suspect]
     Active Substance: ANAKINRA
     Dosage: 140 MG, QD
     Route: 065
     Dates: start: 20180810, end: 20180816
  6. LEUCOVORIN. [Suspect]
     Active Substance: LEUCOVORIN
     Dosage: UNK
     Route: 065
     Dates: start: 20171108
  7. PREDNISONE. [Concomitant]
     Active Substance: PREDNISONE
     Indication: PRODUCT USED FOR UNKNOWN INDICATION
     Dosage: UNK
     Route: 065
     Dates: start: 20170210
  8. NAPROXEN. [Concomitant]
     Active Substance: NAPROXEN
     Indication: STILL^S DISEASE
     Dosage: 375 MG, QD
     Route: 065
     Dates: start: 20150313, end: 20170813
  9. NAPROXEN. [Concomitant]
     Active Substance: NAPROXEN
     Indication: PAIN
     Dosage: 372 MG, QD
     Route: 065
     Dates: start: 20170815
  10. CICLOSPORIN [Suspect]
     Active Substance: CYCLOSPORINE
     Indication: STILL^S DISEASE
     Dosage: 100 MG, QD
     Route: 065
     Dates: start: 20150315, end: 20170813
  11. CICLOSPORIN [Suspect]
     Active Substance: CYCLOSPORINE
     Dosage: 100 MG, QD
     Route: 065
     Dates: start: 20171114, end: 20180117
  12. METHOTREXATE. [Suspect]
     Active Substance: METHOTREXATE
     Indication: STILL^S DISEASE
     Dosage: 20 MG, QD
     Route: 065
     Dates: start: 20150315, end: 20160329
  13. METHOTREXATE. [Suspect]
     Active Substance: METHOTREXATE
     Dosage: 20 MG, QD
     Route: 065
     Dates: start: 20170821, end: 20180117
  14. KINERET [Suspect]
     Active Substance: ANAKINRA
     Dosage: UNK
     Route: 065
     Dates: start: 20181011
  15. XELJANZ [Suspect]
     Active Substance: TOFACITINIB CITRATE
     Indication: STILL^S DISEASE
     Dosage: 5 MG, QD
     Route: 065
     Dates: start: 20180713
  16. XELJANZ [Suspect]
     Active Substance: TOFACITINIB CITRATE
     Dosage: UNK
     Route: 065
     Dates: start: 20180930
  17. NO TREATMENT RECEIVED [Suspect]
     Active Substance: UNSPECIFIED INGREDIENT
     Indication: STILL^S DISEASE
     Dosage: UNK
     Route: 065
  18. KINERET [Suspect]
     Active Substance: ANAKINRA
     Dosage: 100 MG, QD
     Route: 065
     Dates: start: 20180821, end: 20180908
  19. NAPROXEN. [Concomitant]
     Active Substance: NAPROXEN
     Dosage: 375 MG, QD
     Route: 065
     Dates: start: 20170816, end: 20170908
  20. NAPROXEN. [Concomitant]
     Active Substance: NAPROXEN
     Dosage: 750 MG, UNK
     Route: 065
     Dates: start: 20171003
  21. PREDNISONE. [Concomitant]
     Active Substance: PREDNISONE
     Dosage: UNK
     Route: 065
     Dates: start: 20171002
  22. METHOTREXATE. [Suspect]
     Active Substance: METHOTREXATE
     Dosage: 15 MG, QD
     Route: 065
     Dates: start: 20160404, end: 20170814
  23. KINERET [Suspect]
     Active Substance: ANAKINRA
     Indication: STILL^S DISEASE
     Dosage: 100 MG, QD
     Route: 065
     Dates: start: 20150402, end: 20180714
  24. LEUCOVORIN. [Suspect]
     Active Substance: LEUCOVORIN
     Indication: STILL^S DISEASE
     Dosage: 5 MG, QD
     Route: 065
     Dates: start: 20170206, end: 20181117
  25. KINERET [Suspect]
     Active Substance: ANAKINRA
     Dosage: 120 MG, QD
     Route: 065
     Dates: start: 20180817, end: 20180820
  26. KINERET [Suspect]
     Active Substance: ANAKINRA
     Dosage: 100 MG, QD
     Route: 065
     Dates: start: 20171113
  27. KINERET [Suspect]
     Active Substance: ANAKINRA
     Dosage: 100 MG, QD
     Route: 065
     Dates: start: 20180108, end: 20180704
  28. KINERET [Suspect]
     Active Substance: ANAKINRA
     Dosage: 100 MG, QD
     Route: 065
     Dates: start: 20180706, end: 20180714
  29. FOLIC ACID. [Concomitant]
     Active Substance: FOLIC ACID
     Indication: STILL^S DISEASE
     Dosage: 1 MG, QD
     Route: 065
     Dates: start: 20150315, end: 20161019

REACTIONS (18)
  - Dizziness [Unknown]
  - Condition aggravated [Recovered/Resolved]
  - Alveolar proteinosis [Recovered/Resolved]
  - Cough [Recovering/Resolving]
  - Headache [Recovered/Resolved]
  - Pyrexia [Recovered/Resolved]
  - Rash [Recovering/Resolving]
  - Infection [Unknown]
  - Dyspnoea [Recovering/Resolving]
  - Haemophagocytic lymphohistiocytosis [Recovered/Resolved]
  - Cytomegalovirus viraemia [Recovered/Resolved]
  - Still^s disease [Recovered/Resolved]
  - Arthralgia [Recovering/Resolving]
  - Oxygen saturation decreased [Recovering/Resolving]
  - Fatigue [Recovering/Resolving]
  - Gastrooesophageal reflux disease [Recovered/Resolved]
  - Respiratory symptom [Recovering/Resolving]
  - Product use in unapproved indication [Unknown]

NARRATIVE: CASE EVENT DATE: 20170812
